FAERS Safety Report 17933106 (Version 2)
Quarter: 2021Q2

REPORT INFORMATION
  Report Type: Spontaneous
  Country: CA (occurrence: CA)
  Receive Date: 20200623
  Receipt Date: 20210628
  Transmission Date: 20210717
  Serious: Yes (Life-Threatening, Hospitalization)
  Sender: FDA-Public Use
  Company Number: CA-TEVA-2020-CA-1790226

PATIENT
  Age: 20 Month
  Sex: Male
  Weight: 15 kg

DRUGS (3)
  1. MORPHINE [Suspect]
     Active Substance: MORPHINE
     Dosage: BEFORE DISCHARGE
     Route: 048
  2. NALOXONE [Suspect]
     Active Substance: NALOXONE
     Indication: DEPRESSED LEVEL OF CONSCIOUSNESS
     Dosage: ADMINISTERED TWICE AT 1?HOUR INTERVAL
     Route: 065
  3. MORPHINE [Suspect]
     Active Substance: MORPHINE
     Dosage: 2 HOURS AFTER DISCHARGE (AT HOME)
     Route: 048

REACTIONS (8)
  - Neurotoxicity [Recovering/Resolving]
  - Toxicity to various agents [Recovering/Resolving]
  - Drug ineffective [Unknown]
  - Brain oedema [Recovering/Resolving]
  - Ataxia [Recovered/Resolved]
  - Blindness cortical [Recovering/Resolving]
  - Accidental overdose [Unknown]
  - Dysmetria [Recovered/Resolved]
